FAERS Safety Report 13554229 (Version 1)
Quarter: 2017Q2

REPORT INFORMATION
  Report Type: Report from Study
  Country: None (occurrence: NL)
  Receive Date: 20170517
  Receipt Date: 20170517
  Transmission Date: 20170830
  Serious: Yes (Hospitalization, Other)
  Sender: FDA-Public Use
  Company Number: NL-ABBVIE-17K-114-1948541-00

PATIENT
  Sex: Female

DRUGS (1)
  1. DUODOPA [Suspect]
     Active Substance: CARBIDOPA\LEVODOPA
     Indication: PARKINSON^S DISEASE
     Dosage: MORNING DOSE: 8.5, CONTINUOUS DOSE: 3.1, EXTRA DOSE: 2.0
     Route: 050
     Dates: start: 20141211

REACTIONS (6)
  - Device dislocation [Recovered/Resolved]
  - Device occlusion [Not Recovered/Not Resolved]
  - Malaise [Recovered/Resolved]
  - Post procedural sepsis [Recovered/Resolved]
  - Constipation [Recovered/Resolved]
  - Abdominal pain upper [Unknown]

NARRATIVE: CASE EVENT DATE: 2017
